FAERS Safety Report 4613183-5 (Version None)
Quarter: 2005Q1

REPORT INFORMATION
  Report Type: 
  Country: None (occurrence: None)
  Receive Date: 20050316
  Receipt Date: 20050303
  Transmission Date: 20050727
  Serious: Yes (Other)
  Sender: FDA-Public Use
  Company Number: 2005040766

PATIENT
  Sex: Male
  Weight: 80.7403 kg

DRUGS (8)
  1. NORVASC [Suspect]
     Indication: BLOOD PRESSURE INADEQUATELY CONTROLLED
     Dosage: 5 MG (5 MG, QD INTERVAL; EVERY DAY), ORAL
     Route: 048
     Dates: end: 20050201
  2. CADUET (ATORVASTATIN, AMLODIPINE) [Suspect]
     Indication: BLOOD PRESSURE INADEQUATELY CONTROLLED
     Dosage: 5/40 MG (QD INTERVAL: EVERY DAY), ORAL
     Route: 048
     Dates: start: 20050201, end: 20050225
  3. LIPITOR [Suspect]
     Indication: BLOOD CHOLESTEROL INCREASED
     Dosage: 40 MG (40 MG, QD INTERVAL: EVERY DAY), ORAL
     Route: 048
     Dates: end: 20050201
  4. CARVEDILOL [Concomitant]
  5. ESOMEPRAZOLE (ESOMEPRAZOLE) [Concomitant]
  6. GLIMEPIRIDE [Concomitant]
  7. METFORMIN HCL [Concomitant]
  8. ASPIRIN [Concomitant]

REACTIONS (2)
  - BLOOD PRESSURE SYSTOLIC INCREASED [None]
  - DOUBLE VESSEL BYPASS GRAFT [None]
